FAERS Safety Report 9743143 (Version 1)
Quarter: 2013Q4

REPORT INFORMATION
  Report Type: Spontaneous
  Country: US (occurrence: US)
  Receive Date: 20131210
  Receipt Date: 20131210
  Transmission Date: 20140711
  Serious: No
  Sender: FDA-Public Use
  Company Number: US-GILEAD-2009-0024302

PATIENT
  Sex: Male
  Weight: 80.74 kg

DRUGS (14)
  1. LETAIRIS [Suspect]
     Indication: PULMONARY ARTERIAL HYPERTENSION
     Route: 048
     Dates: start: 20090627
  2. REVATIO [Concomitant]
  3. COUMADIN [Concomitant]
  4. TORSEMIDE [Concomitant]
  5. LISINOPRIL [Concomitant]
  6. FINASTERIDE [Concomitant]
  7. IPRATROPIUM SOLUTION [Concomitant]
  8. ALBUTEROL SULF [Concomitant]
  9. ZEMPLAR [Concomitant]
  10. FLOMAX [Concomitant]
  11. ALPRAZOLAM [Concomitant]
  12. ZOLPIDEM [Concomitant]
  13. PREVACID [Concomitant]
  14. VITAMIN D [Concomitant]

REACTIONS (1)
  - Fluid retention [Unknown]
